FAERS Safety Report 7378679-4 (Version None)
Quarter: 2011Q1

REPORT INFORMATION
  Report Type: 
  Country: None (occurrence: None)
  Receive Date: 20110328
  Receipt Date: 20110318
  Transmission Date: 20110831
  Serious: Yes (Death, Hospitalization, Other)
  Sender: FDA-Public Use
  Company Number: US-MPIJNJ-2011-01129

PATIENT
  Sex: Male
  Weight: 82.54 kg

DRUGS (2)
  1. VELCADE [Suspect]
     Indication: MANTLE CELL LYMPHOMA
     Dosage: UNK
     Dates: start: 20110221, end: 20110224
  2. RITUXAN [Concomitant]
     Indication: MANTLE CELL LYMPHOMA
     Dosage: UNK

REACTIONS (7)
  - OEDEMA PERIPHERAL [None]
  - ABDOMINAL DISTENSION [None]
  - MANTLE CELL LYMPHOMA [None]
  - RESPIRATORY FAILURE [None]
  - DIARRHOEA [None]
  - HYPOVENTILATION [None]
  - DEHYDRATION [None]
